FAERS Safety Report 9421487 (Version 1)
Quarter: 2013Q3

REPORT INFORMATION
  Report Type: Spontaneous
  Country: US (occurrence: US)
  Receive Date: 20130726
  Receipt Date: 20130726
  Transmission Date: 20140515
  Serious: No
  Sender: FDA-Public Use
  Company Number: US-B.I. PHARMACEUTICALS,INC./RIDGEFIELD-2013-BI-21696BP

PATIENT
  Age: 61 Year
  Sex: Male

DRUGS (3)
  1. PRADAXA [Suspect]
     Indication: CEREBROVASCULAR ACCIDENT PROPHYLAXIS
     Dosage: 300 MG
     Route: 048
     Dates: start: 20130219
  2. PRADAXA [Suspect]
     Indication: ATRIAL FIBRILLATION
  3. ATENOLOL [Concomitant]
     Indication: ATRIAL FIBRILLATION
     Dosage: 50 MG
     Route: 048
     Dates: start: 2012

REACTIONS (3)
  - Asthenia [Not Recovered/Not Resolved]
  - Arthralgia [Not Recovered/Not Resolved]
  - Joint crepitation [Not Recovered/Not Resolved]
